FAERS Safety Report 4801284-8 (Version None)
Quarter: 2005Q4

REPORT INFORMATION
  Report Type: 
  Country: None (occurrence: None)
  Receive Date: 20051011
  Receipt Date: 20050927
  Transmission Date: 20060501
  Serious: Yes (Death)
  Sender: FDA-Public Use
  Company Number: WAES 0509USA04569

PATIENT
  Sex: Male

DRUGS (8)
  1. COZAAR [Suspect]
     Indication: HYPERTENSION
     Dosage: 50 MG/DAILY, PO
     Route: 048
     Dates: start: 20020109, end: 20040924
  2. ALLYLESTRENOL [Concomitant]
  3. BENZBROMARONE [Concomitant]
  4. EBASTINE [Concomitant]
  5. ISOSORBIDE DINITRATE [Concomitant]
  6. TAMSULOSIN HYDROCHLORIDE [Concomitant]
  7. THEOPHYLLINE [Concomitant]
  8. URAPIDIL [Concomitant]

REACTIONS (2)
  - SUDDEN DEATH [None]
  - TREATMENT NONCOMPLIANCE [None]
